FAERS Safety Report 8301621-6 (Version None)
Quarter: 2012Q2

REPORT INFORMATION
  Report Type: 
  Country: None (occurrence: None)
  Receive Date: 20120420
  Receipt Date: 20120409
  Transmission Date: 20120825
  Serious: Yes (Other)
  Sender: FDA-Public Use
  Company Number: US-ELI_LILLY_AND_COMPANY-US201204003212

PATIENT
  Age: 33 Year
  Sex: Male

DRUGS (4)
  1. PROPECIA [Concomitant]
  2. ARIMIDEX [Concomitant]
  3. VYVANSE [Concomitant]
  4. AXIRON [Suspect]
     Indication: HYPOGONADISM
     Dosage: 60 MG, QD
     Dates: start: 20110901

REACTIONS (1)
  - PITUITARY TUMOUR [None]
